FAERS Safety Report 4365960-6 (Version None)
Quarter: 2004Q2

REPORT INFORMATION
  Report Type: 
  Country: None (occurrence: None)
  Receive Date: 20040521
  Receipt Date: 20040427
  Transmission Date: 20050107
  Serious: Yes (Death)
  Sender: FDA-Public Use
  Company Number: EWC040438782

PATIENT
  Age: 59 Year
  Sex: Male
  Weight: 78 kg

DRUGS (38)
  1. XIGRIS [Suspect]
     Indication: SEPSIS
     Dosage: 24 UG/KG/HR/1 HOUR
     Dates: start: 20040329, end: 20040402
  2. HEPARIN [Concomitant]
  3. INSULIN [Concomitant]
  4. ... [Suspect]
     Indication: SEPSIS
     Dosage: 24 UG/KG/HR/1 HOUR
     Dates: start: 20040329, end: 20040402
  5. HEPARIN [Concomitant]
  6. INSULIN [Concomitant]
  7. ENOXAPARIN SODIUM [Concomitant]
  8. DOPAMINE HCL [Concomitant]
  9. NORADRENALINE [Concomitant]
  10. FUROSEMIDE [Concomitant]
  11. PANTOPRAZOLE [Concomitant]
  12. ACTOCORTIN (DI-HYDROCORTISONE SODIUM PHOSPHATE) [Concomitant]
  13. IMIPENEM [Concomitant]
  14. VANCOMYCIN [Concomitant]
  15. ALBUMIN (HUMAN) [Concomitant]
  16. FLUCONAZOLE [Concomitant]
  17. ALBUTEROL SULFATE [Concomitant]
  18. VITAMIN K TAB [Concomitant]
  19. MIDAZOLAM HCL [Concomitant]
  20. CISATRACURIUM [Concomitant]
  21. FRAXIPARINE (HEPARIN-FRACTION, CALCIUM SALT) [Concomitant]
     Indication: SEPSIS
     Dosage: 24 UG/KG/HR/1 HOUR
     Dates: start: 20040329, end: 20040402
  22. HEPARIN [Concomitant]
  23. INSULIN [Concomitant]
  24. ENOXAPARIN SODIUM [Concomitant]
  25. DOPAMINE HCL [Concomitant]
  26. NORADRENALINE [Concomitant]
  27. FUROSEMIDE [Concomitant]
  28. PANTOPRAZOLE [Concomitant]
  29. ACTOCORTIN (DI-HYDROCORTISONE SODIUM PHOSPHATE) [Concomitant]
  30. IMIPENEM [Concomitant]
  31. VANCOMYCIN [Concomitant]
  32. ALBUMIN (HUMAN) [Concomitant]
  33. FLUCONAZOLE [Concomitant]
  34. ALBUTEROL SULFATE [Concomitant]
  35. VITAMIN K TAB [Concomitant]
  36. MIDAZOLAM HCL [Concomitant]
  37. CISATRACURIUM [Concomitant]
  38. FRAXIPARINE (HEPARIN-FRACTION, CALCIUM SALT) [Concomitant]

REACTIONS (18)
  - ACTIVATED PARTIAL THROMBOPLASTIN TIME PROLONGED [None]
  - CARDIO-RESPIRATORY ARREST [None]
  - CARDIOVASCULAR DISORDER [None]
  - CATHETER SITE HAEMORRHAGE [None]
  - GALLBLADDER PERFORATION [None]
  - HAEMATOCRIT DECREASED [None]
  - HAEMODYNAMIC INSTABILITY [None]
  - HAEMOGLOBIN DECREASED [None]
  - HAEMORRHAGE INTRACRANIAL [None]
  - HYPERTENSION [None]
  - METABOLIC DISORDER [None]
  - MULTI-ORGAN FAILURE [None]
  - PERITONITIS [None]
  - PNEUMONIA [None]
  - PROTHROMBIN LEVEL INCREASED [None]
  - RENAL FAILURE ACUTE [None]
  - RESPIRATORY FAILURE [None]
  - SPUTUM PURULENT [None]
